FAERS Safety Report 8347384-X (Version None)
Quarter: 2012Q2

REPORT INFORMATION
  Report Type: 
  Country: None (occurrence: None)
  Receive Date: 20120507
  Receipt Date: 20120501
  Transmission Date: 20120825
  Serious: Yes (Hospitalization, Other)
  Sender: FDA-Public Use
  Company Number: ACO_30007_2012

PATIENT
  Age: 47 Year
  Sex: Female
  Weight: 74.4 kg

DRUGS (2)
  1. AMPYRA [Suspect]
     Indication: PRODUCT USED FOR UNKNOWN INDICATION
     Dosage: 10 MG, BID, ORAL
     Route: 048
     Dates: start: 20111214
  2. AVONEX [Concomitant]

REACTIONS (4)
  - BONE NEOPLASM MALIGNANT [None]
  - LUNG NEOPLASM MALIGNANT [None]
  - CERVICAL VERTEBRAL FRACTURE [None]
  - NEOPLASM [None]
